FAERS Safety Report 5148130-3 (Version None)
Quarter: 2006Q4

REPORT INFORMATION
  Report Type: 
  Country: None (occurrence: None)
  Receive Date: 20061106
  Receipt Date: 20061019
  Transmission Date: 20070319
  Serious: Yes (Hospitalization)
  Sender: FDA-Public Use
  Company Number: DSA_28869_2006

PATIENT
  Age: 27 Year
  Sex: Female

DRUGS (3)
  1. TAVOR [Suspect]
     Dosage: 1 TAB ONCE PO
     Route: 048
     Dates: start: 20061005, end: 20061005
  2. CIATYL-Z ACUPHASE              (ZUCLOPENTHIXOL) [Suspect]
     Dosage: 150 MG ONCE
     Dates: start: 20061005, end: 20061005
  3. VALIUM [Suspect]
     Dosage: 1 TAB ONCE PO
     Route: 048
     Dates: start: 20061005, end: 20061005

REACTIONS (5)
  - DRUG ADMINISTRATION ERROR [None]
  - DRUG PRESCRIBING ERROR [None]
  - HYPOTENSION [None]
  - MIOSIS [None]
  - SOPOR [None]
